FAERS Safety Report 9410587 (Version 2)
Quarter: 2015Q2

REPORT INFORMATION
  Report Type: Spontaneous
  Country: GB (occurrence: GB)
  Receive Date: 20130719
  Receipt Date: 20150529
  Transmission Date: 20150821
  Serious: Yes (Life-Threatening)
  Sender: FDA-Public Use
  Company Number: GB-WATSON-2013-12715

PATIENT
  Age: 91 Year

DRUGS (5)
  1. GENTAMICIN (UNKNOWN) [Suspect]
     Active Substance: GENTAMICIN
     Indication: BACTERIAL INFECTION
     Dosage: 120 MG, UNKNOWN
     Route: 041
     Dates: start: 20110622, end: 20110622
  2. CIPROFLOXACIN HYDROCHLORIDE (UNKNOWN) [Suspect]
     Active Substance: CIPROFLOXACIN HYDROCHLORIDE
     Indication: PSEUDOMONAS INFECTION
     Dosage: 500 MG, BID
     Route: 048
     Dates: start: 20110617, end: 20110621
  3. PIPERACILLIN AND TAZOBACTAM [Suspect]
     Active Substance: PIPERACILLIN SODIUM\TAZOBACTAM SODIUM
     Indication: PRODUCT USED FOR UNKNOWN INDICATION
     Dosage: 4.5 G, TID
     Route: 041
     Dates: start: 20110625, end: 20110701
  4. GENTAMICIN (UNKNOWN) [Suspect]
     Active Substance: GENTAMICIN
     Dosage: 120 MG, UNKNOWN
     Route: 041
     Dates: start: 20110624, end: 20110624
  5. CEFUROXIME (UNKNOWN) [Suspect]
     Active Substance: CEFUROXIME
     Indication: PRODUCT USED FOR UNKNOWN INDICATION
     Dosage: 1.5 G, UNKNOWN
     Route: 041
     Dates: start: 20110609, end: 20110609

REACTIONS (1)
  - Clostridium difficile infection [Unknown]
